FAERS Safety Report 11102336 (Version 1)
Quarter: 2015Q2

REPORT INFORMATION
  Report Type: Spontaneous
  Country: US (occurrence: None)
  Receive Date: 20150507
  Receipt Date: 20150507
  Transmission Date: 20150821
  Serious: Yes (Hospitalization, Other)
  Sender: FDA-Public Use
  Company Number: ADR-2015-00888

PATIENT
  Age: 53 Year
  Sex: Female

DRUGS (1)
  1. BACLOFEN (ORAL) [Suspect]
     Active Substance: BACLOFEN

REACTIONS (8)
  - Overdose [None]
  - Toxicity to various agents [None]
  - Confusional state [None]
  - Mydriasis [None]
  - Status epilepticus [None]
  - Unresponsive to stimuli [None]
  - Hypotonia [None]
  - Hyporeflexia [None]

NARRATIVE: CASE EVENT DATE: 20150101
